APPROVED DRUG PRODUCT: FLUPHENAZINE HYDROCHLORIDE
Active Ingredient: FLUPHENAZINE HYDROCHLORIDE
Strength: 2.5MG
Dosage Form/Route: TABLET;ORAL
Application: A214674 | Product #002 | TE Code: AB
Applicant: NOVITIUM PHARMA LLC
Approved: Mar 1, 2021 | RLD: No | RS: No | Type: RX